FAERS Safety Report 17328065 (Version 1)
Quarter: 2020Q1

REPORT INFORMATION
  Report Type: Spontaneous
  Country: NL (occurrence: NL)
  Receive Date: 20200127
  Receipt Date: 20200127
  Transmission Date: 20200409
  Serious: Yes (Other)
  Sender: FDA-Public Use
  Company Number: NL-MYLANLABS-2020M1009479

PATIENT
  Age: 44 Year
  Sex: Male
  Weight: 96 kg

DRUGS (1)
  1. LOSARTAN. [Suspect]
     Active Substance: LOSARTAN
     Indication: HYPERTENSION
     Dosage: FILMOMHULDE TABLET, 50 MG (MILLIGRAM), 1 KEER PER DAG, 1
     Dates: start: 20191125

REACTIONS (4)
  - Cough [Recovering/Resolving]
  - Erectile dysfunction [Not Recovered/Not Resolved]
  - Headache [Not Recovered/Not Resolved]
  - Libido disorder [Not Recovered/Not Resolved]

NARRATIVE: CASE EVENT DATE: 20191125
